FAERS Safety Report 4645185-7 (Version None)
Quarter: 2005Q2

REPORT INFORMATION
  Report Type: 
  Country: None (occurrence: None)
  Receive Date: 20050331
  Receipt Date: 20041202
  Transmission Date: 20051028
  Serious: No
  Sender: FDA-Public Use
  Company Number: 04P-163-0282136

PATIENT
  Age: 62 Year
  Sex: Female
  Weight: 59.8748 kg

DRUGS (5)
  1. HUMIRA [Suspect]
     Indication: RHEUMATOID ARTHRITIS
     Dosage: 40 MG, 1 IN 2 WK, SUBCUTANEOUS
     Route: 058
     Dates: start: 20040501
  2. PROPACET 100 [Concomitant]
  3. ESTROGENS CONJUGATED [Concomitant]
  4. CALCIUM GLUCONATE [Concomitant]
  5. LEVOTHYROXINE SODIUM [Concomitant]

REACTIONS (4)
  - INJECTION SITE ERYTHEMA [None]
  - INJECTION SITE IRRITATION [None]
  - INJECTION SITE PRURITUS [None]
  - NASOPHARYNGITIS [None]
